FAERS Safety Report 10380844 (Version 2)
Quarter: 2014Q3

REPORT INFORMATION
  Report Type: Report from Study
  Country: BR (occurrence: BR)
  Receive Date: 20140813
  Receipt Date: 20140813
  Transmission Date: 20150326
  Serious: Yes (Hospitalization, Other)
  Sender: FDA-Public Use
  Company Number: BR-BAYER-2014-113352

PATIENT
  Age: 41 Year
  Sex: Female

DRUGS (6)
  1. YAZ [Suspect]
     Active Substance: DROSPIRENONE\ETHINYL ESTRADIOL
     Indication: CONTRACEPTION
     Dosage: UNK
     Route: 048
     Dates: end: 2012
  2. DAFLON [DIOSMIN] [Concomitant]
     Indication: CARDIOVASCULAR DISORDER
     Dosage: 2 DF, BID
     Route: 048
     Dates: start: 20120618
  3. AMITRIPTYLINE HYDROCHLORIDE. [Concomitant]
     Active Substance: AMITRIPTYLINE HYDROCHLORIDE
     Indication: PROPHYLAXIS
     Dosage: 1 DF, QD
     Route: 048
     Dates: start: 2012
  4. SYMAX [Concomitant]
     Active Substance: HYOSCYAMINE SULFATE
     Indication: MIGRAINE
     Dosage: 1 DF, QD
     Route: 048
     Dates: start: 2012
  5. PANTOPRAZOLE [Concomitant]
     Active Substance: PANTOPRAZOLE SODIUM
     Indication: GASTROOESOPHAGEAL REFLUX DISEASE
  6. PANTOPRAZOLE [Concomitant]
     Active Substance: PANTOPRAZOLE SODIUM
     Indication: HIATUS HERNIA
     Dosage: 1 DF, QD
     Route: 048
     Dates: start: 2013

REACTIONS (10)
  - Pulmonary embolism [None]
  - Pneumonia [Recovered/Resolved]
  - Dyspnoea [Recovered/Resolved]
  - Thrombosis [Recovered/Resolved]
  - Abasia [Recovered/Resolved]
  - Migraine [Recovered/Resolved]
  - Pneumonia [Recovered/Resolved]
  - Activities of daily living impaired [Recovered/Resolved]
  - Pulmonary embolism [Recovered/Resolved]
  - Panic reaction [Recovered/Resolved]

NARRATIVE: CASE EVENT DATE: 201203
